FAERS Safety Report 10423078 (Version 1)
Quarter: 2014Q3

REPORT INFORMATION
  Report Type: Spontaneous
  Country: US (occurrence: None)
  Receive Date: 20140722
  Receipt Date: 20140722
  Transmission Date: 20150326
  Serious: No
  Sender: FDA-Public Use
  Company Number: AEGR000527

PATIENT
  Age: 67 Year
  Sex: Male
  Weight: 93.4 kg

DRUGS (11)
  1. JUXTAPID [Suspect]
     Active Substance: LOMITAPIDE MESYLATE
     Indication: TYPE IIA HYPERLIPIDAEMIA
     Route: 048
     Dates: start: 20140513, end: 2014
  2. AMBIEN [Concomitant]
     Active Substance: ZOLPIDEM TARTRATE
  3. POTASSIUM (POTASSIUM BICARBONATE, POTASSIUM CHLORIDE) [Concomitant]
  4. OMEPRAZOLE (OMEPRAZOLE) [Concomitant]
     Active Substance: OMEPRAZOLE
  5. VERAPAMIL (VERAPAMIL HYDROCHLORIDE) (VERAPAMIL HYDROCHLORIDE) [Concomitant]
     Active Substance: VERAPAMIL HYDROCHLORIDE
  6. FERROUS GLUCONATE (FERROUS GLUCONATE) [Concomitant]
     Active Substance: FERROUS GLUCONATE
  7. NORCO (HYDROCODONE BITARTRATE, PARACETAMOL) [Concomitant]
  8. VITAMIN B (VITAMIN B COMPLEX) [Concomitant]
  9. COUMADIN [Concomitant]
     Active Substance: WARFARIN SODIUM
  10. VITAMIN D3 [Concomitant]
     Active Substance: CHOLECALCIFEROL
  11. GABAPENTIN (GABAPENTIN) [Concomitant]
     Active Substance: GABAPENTIN

REACTIONS (1)
  - Diarrhoea [None]

NARRATIVE: CASE EVENT DATE: 2014
